FAERS Safety Report 7876704-5 (Version None)
Quarter: 2011Q4

REPORT INFORMATION
  Report Type: 
  Country: None (occurrence: None)
  Receive Date: 20111031
  Receipt Date: 20111026
  Transmission Date: 20120403
  Serious: Yes (Other)
  Sender: FDA-Public Use
  Company Number: US-BAYER-2011-071754

PATIENT
  Age: 44 Year
  Sex: Male

DRUGS (4)
  1. NEXAVAR [Suspect]
     Indication: HEPATIC NEOPLASM MALIGNANT
     Dosage: 200 MG, QD
     Dates: start: 20110804, end: 20110901
  2. PRILOSEC [Concomitant]
     Dosage: 40 MG, QD
     Route: 048
  3. NEXAVAR [Suspect]
     Dosage: 400 MG, BID
     Route: 048
     Dates: start: 20110803, end: 20111026
  4. NEXAVAR [Suspect]
     Dosage: 200 MG, QOD
     Route: 048
     Dates: start: 20110101

REACTIONS (15)
  - DIARRHOEA [None]
  - REFLEXES ABNORMAL [None]
  - BURNING SENSATION [None]
  - HYPERHIDROSIS [None]
  - PALMAR-PLANTAR ERYTHRODYSAESTHESIA SYNDROME [None]
  - HYPERAESTHESIA [None]
  - SKIN EXFOLIATION [None]
  - HYPOAESTHESIA [None]
  - PARAESTHESIA [None]
  - PAIN [None]
  - DRY SKIN [None]
  - FLATULENCE [None]
  - HYPERKERATOSIS [None]
  - PAIN IN EXTREMITY [None]
  - ERYTHEMA [None]
